FAERS Safety Report 24759892 (Version 2)
Quarter: 2025Q1

REPORT INFORMATION
  Report Type: Report from Study
  Country: DE (occurrence: DE)
  Receive Date: 20241220
  Receipt Date: 20250102
  Transmission Date: 20250409
  Serious: Yes (Hospitalization)
  Sender: TORRENT PHARMA INC.
  Company Number: None

PATIENT
  Sex: Male

DRUGS (2)
  1. CELECOXIB [Suspect]
     Active Substance: CELECOXIB
     Indication: Axial spondyloarthritis
     Route: 065
     Dates: start: 20210218
  2. COSENTYX [Suspect]
     Active Substance: SECUKINUMAB
     Indication: Axial spondyloarthritis
     Route: 065
     Dates: start: 20201008

REACTIONS (11)
  - Depression [Recovered/Resolved]
  - Borderline personality disorder [Unknown]
  - Sinusitis [Unknown]
  - Psoriasis [Unknown]
  - Chondropathy [Unknown]
  - Tendon disorder [Unknown]
  - Back pain [Unknown]
  - Sinus bradycardia [Unknown]
  - Contusion [Unknown]
  - COVID-19 [Unknown]
  - Libido disorder [Unknown]

NARRATIVE: CASE EVENT DATE: 20211103
